FAERS Safety Report 5950849-9 (Version None)
Quarter: 2008Q4

REPORT INFORMATION
  Report Type: 
  Country: None (occurrence: None)
  Receive Date: 20081110
  Receipt Date: 20081104
  Transmission Date: 20090506
  Serious: Yes (Life-Threatening, Other)
  Sender: FDA-Public Use
  Company Number: GXKR2008DE10427

PATIENT
  Age: 44 Year
  Sex: Female
  Weight: 75 kg

DRUGS (2)
  1. DOXEPIN HCL [Suspect]
     Dosage: 50 MG, QD, ORAL
     Route: 048
     Dates: start: 20080101
  2. LYRICA (PREFABALIN) [Concomitant]

REACTIONS (2)
  - DIZZINESS [None]
  - TORSADE DE POINTES [None]
